FAERS Safety Report 9538585 (Version 1)
Quarter: 2013Q2

REPORT INFORMATION
  Report Type: Spontaneous
  Country: US (occurrence: None)
  Receive Date: 20130507
  Receipt Date: 20130507
  Transmission Date: 20140414
  Serious: No
  Sender: FDA-Public Use
  Company Number: PHEH2013US001561

PATIENT
  Sex: Female

DRUGS (1)
  1. AFINITOR (RAD) TABLET, 10MG [Suspect]
     Dosage: 10 MG, EVERY DAY, ORAL
     Route: 048

REACTIONS (2)
  - Insomnia [None]
  - Paraesthesia [None]
